FAERS Safety Report 6788573-5 (Version None)
Quarter: 2010Q2

REPORT INFORMATION
  Report Type: 
  Country: None (occurrence: None)
  Receive Date: 20100623
  Receipt Date: 20080403
  Transmission Date: 20101027
  Serious: Yes (Other)
  Sender: FDA-Public Use
  Company Number: US-PFIZER INC-2008029673

PATIENT
  Sex: Female
  Weight: 90 kg

DRUGS (10)
  1. DEPO-SUBQ PROVERA 104 [Suspect]
     Indication: CONTRACEPTION
     Dosage: FIRST INJECTION
     Route: 058
     Dates: start: 20000101, end: 20000101
  2. DEPO-SUBQ PROVERA 104 [Suspect]
     Dosage: LAST INJECTION
     Route: 058
     Dates: start: 20070801, end: 20070801
  3. LAMICTAL [Concomitant]
  4. WELLBUTRIN [Concomitant]
  5. MONTELUKAST SODIUM [Concomitant]
  6. TOPAMAX [Concomitant]
  7. ALLEGRA [Concomitant]
  8. CLARITIN [Concomitant]
  9. ALBUTEROL [Concomitant]
  10. CELEXA [Concomitant]

REACTIONS (1)
  - WEIGHT INCREASED [None]
